FAERS Safety Report 4324973-0 (Version None)
Quarter: 2004Q1

REPORT INFORMATION
  Report Type: 
  Country: None (occurrence: None)
  Receive Date: 20040323
  Receipt Date: 20040202
  Transmission Date: 20041129
  Serious: No
  Sender: FDA-Public Use
  Company Number: US_0402100439

PATIENT
  Sex: Male

DRUGS (3)
  1. CIALIS [Suspect]
     Dates: start: 20031201
  2. NO2 SUPPLEMENT [Concomitant]
  3. CREATINE [Concomitant]

REACTIONS (1)
  - FLUSHING [None]
